FAERS Safety Report 17279907 (Version 1)
Quarter: 2020Q1

REPORT INFORMATION
  Report Type: Spontaneous
  Country: FR (occurrence: FR)
  Receive Date: 20200116
  Receipt Date: 20200116
  Transmission Date: 20200409
  Serious: Yes (Hospitalization)
  Sender: FDA-Public Use
  Company Number: FR-ABBVIE-20K-056-3236508-00

PATIENT
  Sex: Female

DRUGS (1)
  1. VENCLYXTO [Suspect]
     Active Substance: VENETOCLAX
     Indication: LYMPHOMA
     Route: 048

REACTIONS (5)
  - Off label use [Unknown]
  - Fatigue [Unknown]
  - Viral infection [Unknown]
  - Asthenia [Unknown]
  - Cough [Not Recovered/Not Resolved]
